FAERS Safety Report 6666216-9 (Version None)
Quarter: 2010Q2

REPORT INFORMATION
  Report Type: 
  Country: None (occurrence: None)
  Receive Date: 20100402
  Receipt Date: 20100325
  Transmission Date: 20101027
  Serious: Yes (Other)
  Sender: FDA-Public Use
  Company Number: NL-AMGEN-KDL391766

PATIENT
  Sex: Male

DRUGS (2)
  1. NPLATE [Suspect]
     Indication: IDIOPATHIC THROMBOCYTOPENIC PURPURA
     Route: 058
     Dates: start: 20100114, end: 20100128
  2. METOPROLOL TARTRATE [Concomitant]

REACTIONS (2)
  - OVERDOSE [None]
  - THROMBOCYTOSIS [None]
